FAERS Safety Report 8361687-4 (Version None)
Quarter: 2012Q2

REPORT INFORMATION
  Report Type: 
  Country: None (occurrence: None)
  Receive Date: 20120515
  Receipt Date: 20111003
  Transmission Date: 20120825
  Serious: No
  Sender: FDA-Public Use
  Company Number: US-ABBOTT-11P-163-0860279-00

PATIENT
  Sex: Female
  Weight: 54.48 kg

DRUGS (5)
  1. ESTRADIOL [Concomitant]
     Indication: SUPPLEMENTATION THERAPY
     Route: 048
  2. PROMETRIUM [Suspect]
     Dates: start: 20110929
  3. PROMETRIUM [Suspect]
     Indication: SUPPLEMENTATION THERAPY
     Dates: start: 20110827, end: 20110928
  4. LEVOTHYROXINE SODIUM [Concomitant]
     Indication: HYPOTHYROIDISM
     Route: 048
  5. CRINONE [Concomitant]
     Indication: SUPPLEMENTATION THERAPY
     Route: 048

REACTIONS (1)
  - INCORRECT DOSE ADMINISTERED [None]
